FAERS Safety Report 13853736 (Version 2)
Quarter: 2017Q3

REPORT INFORMATION
  Report Type: Spontaneous
  Country: KR (occurrence: KR)
  Receive Date: 20170810
  Receipt Date: 20170904
  Transmission Date: 20171127
  Serious: Yes (Other)
  Sender: FDA-Public Use
  Company Number: KR-JNJFOC-20170804288

PATIENT

DRUGS (1)
  1. SPORANOX [Suspect]
     Active Substance: ITRACONAZOLE
     Indication: SYSTEMIC MYCOSIS
     Route: 042

REACTIONS (8)
  - Hepatotoxicity [Unknown]
  - Nausea [Unknown]
  - Hypokalaemia [Unknown]
  - Nephropathy toxic [Unknown]
  - Hypotension [Unknown]
  - Pyrexia [Unknown]
  - Rash [Unknown]
  - Drug ineffective [Unknown]
